FAERS Safety Report 5244289-8 (Version None)
Quarter: 2007Q1

REPORT INFORMATION
  Report Type: 
  Country: None (occurrence: None)
  Receive Date: 20070222
  Receipt Date: 20070209
  Transmission Date: 20070707
  Serious: Yes (Hospitalization)
  Sender: FDA-Public Use
  Company Number: PHEH2007US01584

PATIENT
  Age: 62 Year
  Sex: Male

DRUGS (2)
  1. GLEEVEC [Suspect]
     Indication: CHRONIC MYELOID LEUKAEMIA
     Dosage: 600 MG, QD
     Route: 048
     Dates: start: 20030101, end: 20051016
  2. GLEEVEC [Suspect]
     Dates: end: 20060718

REACTIONS (4)
  - CHRONIC MYELOID LEUKAEMIA [None]
  - DISEASE PROGRESSION [None]
  - DRUG RESISTANCE [None]
  - INFECTED INSECT BITE [None]
